FAERS Safety Report 26088291 (Version 1)
Quarter: 2025Q4

REPORT INFORMATION
  Report Type: Report from Study
  Country: SA (occurrence: SA)
  Receive Date: 20251125
  Receipt Date: 20251125
  Transmission Date: 20260117
  Serious: Yes (Other)
  Sender: NOVARTIS
  Company Number: SA-002147023-NVSC2025SA180772

PATIENT
  Age: 64 Year
  Sex: Female

DRUGS (1)
  1. LEQVIO [Suspect]
     Active Substance: INCLISIRAN SODIUM
     Indication: Hypercholesterolaemia
     Dosage: 284 MG, OTHER (ONCE EVERY SIX MONTHS)
     Route: 058
     Dates: start: 20240305, end: 20250819

REACTIONS (6)
  - Nasopharyngitis [Not Recovered/Not Resolved]
  - Helicobacter infection [Unknown]
  - Hyperthyroidism [Unknown]
  - Blood cholesterol increased [Recovered/Resolved]
  - Glycosylated haemoglobin increased [Recovering/Resolving]
  - Inappropriate schedule of product administration [Not Recovered/Not Resolved]

NARRATIVE: CASE EVENT DATE: 20250611
